FAERS Safety Report 7554173-2 (Version None)
Quarter: 2011Q2

REPORT INFORMATION
  Report Type: 
  Country: None (occurrence: None)
  Receive Date: 20110614
  Receipt Date: 20110614
  Transmission Date: 20111010
  Serious: Yes (Death)
  Sender: FDA-Public Use
  Company Number: None

PATIENT
  Sex: Female
  Weight: 64.9 kg

DRUGS (14)
  1. LISINOPRIL [Concomitant]
  2. NITROGLYCERIN [Concomitant]
  3. ASPIRIN [Concomitant]
  4. PRADAXA [Suspect]
     Indication: ATRIAL FIBRILLATION
     Dosage: 150MG BID PO
     Route: 048
     Dates: start: 20110601, end: 20110612
  5. PRAVASTATIN [Concomitant]
  6. CALCIUM CARBONATE [Concomitant]
  7. CELEXA [Concomitant]
  8. NORTRIPTYLINE HCL [Concomitant]
  9. DIGOXIN [Concomitant]
  10. LANTUS [Concomitant]
  11. MULTI-VITAMIN [Concomitant]
  12. WELCHOL [Concomitant]
  13. TOPROL-XL [Concomitant]
  14. ARICEPT [Concomitant]

REACTIONS (7)
  - CONTUSION [None]
  - HEART RATE DECREASED [None]
  - CHEST PAIN [None]
  - HYPOTENSION [None]
  - LOWER GASTROINTESTINAL HAEMORRHAGE [None]
  - DEPRESSED LEVEL OF CONSCIOUSNESS [None]
  - RESPIRATORY RATE DECREASED [None]
